FAERS Safety Report 4753100-0 (Version None)
Quarter: 2005Q3

REPORT INFORMATION
  Report Type: 
  Country: None (occurrence: None)
  Receive Date: 20050826
  Receipt Date: 20050311
  Transmission Date: 20060218
  Serious: Yes (Hospitalization, Other)
  Sender: FDA-Public Use
  Company Number: US-MERCK-0503USA02662

PATIENT
  Age: 47 Year
  Sex: Female
  Weight: 64 kg

DRUGS (22)
  1. VIOXX [Suspect]
     Indication: ARTHRITIS
     Route: 048
     Dates: start: 20000201, end: 20040930
  2. NITROGLYCERIN [Concomitant]
     Indication: CARDIAC DISORDER
     Route: 061
  3. ELAVIL [Concomitant]
     Indication: DEPRESSION
     Route: 048
     Dates: start: 19910101
  4. ELAVIL [Concomitant]
     Indication: INSOMNIA
     Route: 048
     Dates: start: 19910101
  5. XANAX [Concomitant]
     Indication: NERVOUSNESS
     Route: 065
     Dates: start: 19970101
  6. SINGULAIR [Concomitant]
     Indication: HYPERSENSITIVITY
     Route: 048
  7. PROZAC [Concomitant]
     Indication: INSOMNIA
     Route: 065
     Dates: start: 19970101
  8. PROZAC [Concomitant]
     Route: 065
     Dates: start: 19970101
  9. PROZAC [Concomitant]
     Indication: DEPRESSION
     Route: 065
     Dates: start: 19970101
  10. PROZAC [Concomitant]
     Route: 065
     Dates: start: 19970101
  11. LANOXIN [Concomitant]
     Indication: CARDIAC DISORDER
     Route: 065
     Dates: start: 19990101
  12. CAPOTEN [Concomitant]
     Route: 065
  13. FLEXERIL [Concomitant]
     Indication: MYALGIA
     Route: 048
  14. FLEXERIL [Concomitant]
     Indication: ABDOMINAL PAIN UPPER
     Route: 048
  15. TRICOR [Concomitant]
     Route: 065
  16. DONNATAL [Concomitant]
     Indication: ABDOMINAL PAIN UPPER
     Route: 065
  17. LORTAB [Concomitant]
     Indication: PAIN
     Route: 065
  18. ADVAIR DISKUS 100/50 [Concomitant]
     Route: 055
  19. NEURONTIN [Concomitant]
     Indication: PAIN
     Route: 065
  20. GEMFIBROZIL [Concomitant]
     Route: 065
  21. WELLBUTRIN [Concomitant]
     Route: 065
     Dates: start: 20010101, end: 20040920
  22. VALTREX [Concomitant]
     Route: 065

REACTIONS (12)
  - CHEST PAIN [None]
  - CHRONIC FATIGUE SYNDROME [None]
  - CORONARY ARTERY DISEASE [None]
  - DIZZINESS [None]
  - FACIAL PALSY [None]
  - FEELING ABNORMAL [None]
  - HAEMATOCHEZIA [None]
  - HEMIPARESIS [None]
  - HYPOAESTHESIA [None]
  - IMPAIRED HEALING [None]
  - INTESTINAL OBSTRUCTION [None]
  - MYOCARDIAL INFARCTION [None]
